FAERS Safety Report 10037448 (Version 1)
Quarter: 2014Q1

REPORT INFORMATION
  Report Type: Spontaneous
  Country: JP (occurrence: None)
  Receive Date: 20140324
  Receipt Date: 20140324
  Transmission Date: 20141002
  Serious: Yes (Hospitalization)
  Sender: FDA-Public Use
  Company Number: 2014040706

PATIENT
  Age: 57 Year
  Sex: Female

DRUGS (1)
  1. DESMOPRESSIN ACETATE [Suspect]
     Indication: DIABETES INSIPIDUS
     Route: 045

REACTIONS (1)
  - Hyponatraemia [None]
